FAERS Safety Report 7095299-X (Version None)
Quarter: 2010Q4

REPORT INFORMATION
  Report Type: 
  Country: None (occurrence: None)
  Receive Date: 20101018
  Receipt Date: 20100121
  Transmission Date: 20110411
  Serious: Yes (Other)
  Sender: FDA-Public Use
  Company Number: US-WYE-H13114910

PATIENT
  Age: 64 Year
  Sex: Female

DRUGS (7)
  1. PREMARIN [Suspect]
  2. ACTIVELLA [Suspect]
  3. ESTROPIPATE [Suspect]
  4. FEMHRT [Suspect]
  5. OGEN [Suspect]
  6. PREPHASE (CONJUGATED ESTROGENS/MEDROXYPROGESTERONE ACETATE, TABLET, UN [Suspect]
  7. PROVERA [Suspect]

REACTIONS (1)
  - BREAST CANCER [None]
